FAERS Safety Report 12482833 (Version 2)
Quarter: 2018Q2

REPORT INFORMATION
  Report Type: Report from Study
  Country: US (occurrence: US)
  Receive Date: 20160620
  Receipt Date: 20180427
  Transmission Date: 20180711
  Serious: No
  Sender: FDA-Public Use
  Company Number: PHHY2016US083181

PATIENT
  Age: 25 Year
  Sex: Male

DRUGS (1)
  1. GILENYA [Suspect]
     Active Substance: FINGOLIMOD HYDROCHLORIDE
     Indication: MULTIPLE SCLEROSIS
     Dosage: UNK, QD
     Route: 048

REACTIONS (5)
  - White blood cell count decreased [Unknown]
  - Low density lipoprotein increased [Unknown]
  - White blood cell count increased [Unknown]
  - Blood cholesterol increased [Unknown]
  - Burning sensation [Unknown]

NARRATIVE: CASE EVENT DATE: 20141201
